FAERS Safety Report 24257216 (Version 2)
Quarter: 2024Q3

REPORT INFORMATION
  Report Type: Spontaneous
  Country: US (occurrence: US)
  Receive Date: 20240828
  Receipt Date: 20240910
  Transmission Date: 20241017
  Serious: Yes (Other)
  Sender: TEVA
  Company Number: US-TEVA-VS-3235526

PATIENT
  Age: 54 Year
  Sex: Male

DRUGS (3)
  1. BACLOFEN [Suspect]
     Active Substance: BACLOFEN
     Indication: Drug detoxification
     Route: 065
  2. 4-AMINO-3-PHENYLBUTYRIC ACID [Suspect]
     Active Substance: 4-AMINO-3-PHENYLBUTYRIC ACID
     Indication: Performance enhancing product use
     Route: 065
  3. 4-AMINO-3-PHENYLBUTYRIC ACID [Suspect]
     Active Substance: 4-AMINO-3-PHENYLBUTYRIC ACID
     Indication: Performance enhancing product use
     Route: 065

REACTIONS (10)
  - Hallucination [Recovered/Resolved]
  - Withdrawal syndrome [Recovering/Resolving]
  - Akathisia [Recovered/Resolved]
  - Anxiety [Unknown]
  - Irritability [Unknown]
  - Hyperhidrosis [Recovered/Resolved]
  - Intentional product misuse [Unknown]
  - Dizziness [Recovered/Resolved]
  - Drug dependence [Unknown]
  - Blood pressure increased [Recovered/Resolved]
